FAERS Safety Report 10096781 (Version 1)
Quarter: 2014Q2

REPORT INFORMATION
  Report Type: Spontaneous
  Country: US (occurrence: US)
  Receive Date: 20140422
  Receipt Date: 20140422
  Transmission Date: 20141212
  Serious: Yes (Hospitalization)
  Sender: FDA-Public Use
  Company Number: CHPA2014US005545

PATIENT
  Age: 57 Year
  Sex: Female

DRUGS (2)
  1. TRANSDERM SCOP [Suspect]
     Indication: SURGERY
     Dosage: 1 DF, UNK
     Route: 062
     Dates: start: 201212
  2. TRANSDERM SCOP [Suspect]
     Indication: OFF LABEL USE

REACTIONS (3)
  - Somnolence [Recovered/Resolved]
  - Intensive care [Unknown]
  - Incorrect drug administration duration [Unknown]
